FAERS Safety Report 5720101-5 (Version None)
Quarter: 2008Q2

REPORT INFORMATION
  Report Type: 
  Country: None (occurrence: None)
  Receive Date: 20080423
  Receipt Date: 20071107
  Transmission Date: 20081010
  Serious: Yes (Life-Threatening, Disabling, Other)
  Sender: FDA-Public Use
  Company Number: 245245

PATIENT
  Age: 76 Year
  Sex: Male
  Weight: 74.4 kg

DRUGS (2)
  1. AVASTIN [Suspect]
     Indication: NON-SMALL CELL LUNG CANCER
     Dosage: 10 MG/KG, X6, INTRAVENOUS
     Route: 042
     Dates: start: 20061222, end: 20070302
  2. DOCETAXEL [Concomitant]

REACTIONS (1)
  - PULMONARY EMBOLISM [None]
